FAERS Safety Report 8112343-9 (Version None)
Quarter: 2012Q1

REPORT INFORMATION
  Report Type: 
  Country: None (occurrence: None)
  Receive Date: 20120203
  Receipt Date: 20111123
  Transmission Date: 20120608
  Serious: No
  Sender: FDA-Public Use
  Company Number: US-ASTRAZENECA-2011SE71209

PATIENT
  Age: 24 Year
  Sex: Male

DRUGS (3)
  1. ADHESIVE [Concomitant]
  2. BANDAIDS [Concomitant]
  3. VANDETANIB [Suspect]
     Indication: THYROID CANCER
     Route: 048

REACTIONS (6)
  - FEELING OF BODY TEMPERATURE CHANGE [None]
  - VISION BLURRED [None]
  - RASH [None]
  - MALAISE [None]
  - DECREASED APPETITE [None]
  - ACNE [None]
